FAERS Safety Report 7811308-1 (Version None)
Quarter: 2011Q4

REPORT INFORMATION
  Report Type: 
  Country: None (occurrence: None)
  Receive Date: 20111012
  Receipt Date: 20111012
  Transmission Date: 20120403
  Serious: No
  Sender: FDA-Public Use
  Company Number: None

PATIENT
  Sex: Female
  Weight: 60.782 kg

DRUGS (1)
  1. COPAXONE [Suspect]
     Indication: MULTIPLE SCLEROSIS
     Dosage: ONCE DAILY
     Dates: start: 20110829, end: 20110903

REACTIONS (3)
  - FEELING ABNORMAL [None]
  - ASTHENIA [None]
  - PAIN [None]
